FAERS Safety Report 20095368 (Version 3)
Quarter: 2022Q4

REPORT INFORMATION
  Report Type: Report from Study
  Country: FR (occurrence: FR)
  Receive Date: 20211122
  Receipt Date: 20221219
  Transmission Date: 20230113
  Serious: Yes (Hospitalization, Other)
  Sender: FDA-Public Use
  Company Number: FR-IPSEN Group, Research and Development-2021-28888

PATIENT
  Age: 9 Year
  Sex: Female
  Weight: 21 kg

DRUGS (3)
  1. INCRELEX [Suspect]
     Active Substance: MECASERMIN
     Indication: Primary insulin like growth factor-1 deficiency
     Dosage: 0.038 MG/KG = 38 UG/KG
     Route: 065
     Dates: start: 20211102, end: 20211107
  2. INCRELEX [Suspect]
     Active Substance: MECASERMIN
     Dosage: 0.076 (MG/KG) = 76 UG/KG
     Route: 065
     Dates: start: 20211108, end: 20211114
  3. INCRELEX [Suspect]
     Active Substance: MECASERMIN
     Dosage: 0.11 (MG/KG) = 110 UG/KG
     Route: 065
     Dates: start: 20211115

REACTIONS (2)
  - Facial paralysis [Recovered/Resolved]
  - Off label use [Unknown]

NARRATIVE: CASE EVENT DATE: 20211102
